FAERS Safety Report 9819745 (Version 1)
Quarter: 2014Q1

REPORT INFORMATION
  Report Type: Report from Study
  Country: US (occurrence: US)
  Receive Date: 20140116
  Receipt Date: 20140116
  Transmission Date: 20141002
  Serious: Yes (Other)
  Sender: FDA-Public Use
  Company Number: US-ROCHE-1315177

PATIENT
  Age: 62 Year
  Sex: Male
  Weight: 40.86 kg

DRUGS (16)
  1. LUCENTIS [Suspect]
     Indication: DIABETIC RETINAL OEDEMA
     Dosage: EXPIRY DATE: AUG/2012
     Route: 050
  2. BEVACIZUMAB [Suspect]
     Indication: PRODUCT USED FOR UNKNOWN INDICATION
     Route: 050
  3. ASA [Concomitant]
     Route: 065
  4. METOPROLOL TARTRATE [Concomitant]
  5. FISH OIL [Concomitant]
  6. LASIX [Concomitant]
  7. HYDRALAZINE [Concomitant]
  8. FLOMAX (UNITED STATES) [Concomitant]
  9. COREG [Concomitant]
  10. ZOFRAN [Concomitant]
  11. SULAR [Concomitant]
  12. AMBIEN [Concomitant]
  13. DOXAZOSIN MESYLATE [Concomitant]
  14. OMEPRAZOLE [Concomitant]
  15. ULTRAM [Concomitant]
  16. TRAZODONE HCL [Concomitant]

REACTIONS (7)
  - Macular oedema [Unknown]
  - Retinal detachment [Unknown]
  - Vitreous haemorrhage [Unknown]
  - Macular fibrosis [Unknown]
  - Cataract nuclear [Unknown]
  - Cataract subcapsular [Unknown]
  - Vision blurred [Unknown]
